FAERS Safety Report 7308077-0 (Version None)
Quarter: 2011Q1

REPORT INFORMATION
  Report Type: 
  Country: None (occurrence: None)
  Receive Date: 20110223
  Receipt Date: 20100709
  Transmission Date: 20110831
  Serious: Yes (Hospitalization, Disabling, Other)
  Sender: FDA-Public Use
  Company Number: US-BAYER-200941149NA

PATIENT
  Sex: Female
  Weight: 136.36 kg

DRUGS (25)
  1. LEVAQUIN [Concomitant]
     Dates: start: 20060701, end: 20080501
  2. NEXIUM [Concomitant]
     Indication: GASTROOESOPHAGEAL REFLUX DISEASE
     Dates: start: 20060101
  3. PROTONIX [Concomitant]
     Indication: GASTROOESOPHAGEAL REFLUX DISEASE
     Dates: start: 20060101, end: 20070101
  4. YASMIN [Suspect]
     Indication: MENSTRUATION IRREGULAR
     Route: 048
     Dates: start: 20030801, end: 20071201
  5. YASMIN [Suspect]
     Indication: MENORRHAGIA
  6. METHYLPREDNISOLONE [Concomitant]
     Dates: start: 20040101, end: 20071101
  7. YAZ [Suspect]
     Indication: PRODUCT USED FOR UNKNOWN INDICATION
     Dates: start: 20071001
  8. AZITHROMYCIN [Concomitant]
     Dates: start: 20040101, end: 20080101
  9. AMOXICILLIN AND CLAVULANATE POTASSIUM [Concomitant]
     Dates: start: 20040101, end: 20070101
  10. ZYFLO [Concomitant]
     Dates: start: 20040101, end: 20080401
  11. SYNTHROID [Concomitant]
     Dates: start: 20010101, end: 20080101
  12. XANAX [Concomitant]
  13. DUONEB [Concomitant]
     Dates: start: 20040101, end: 20071101
  14. ATENOLOL [Concomitant]
     Dates: start: 20010101
  15. LASIX [Concomitant]
     Dates: start: 20040101, end: 20071201
  16. MAALOX [Concomitant]
  17. SINGULAIR [Concomitant]
     Dates: start: 20040101, end: 20071101
  18. IPRATROPIUM BROMIDE [Concomitant]
     Dates: start: 20040101, end: 20071101
  19. ADVAIR HFA [Concomitant]
     Dates: start: 20040101, end: 20080401
  20. COMBIVENT [Concomitant]
     Dates: start: 20040101, end: 20080401
  21. GLUCOPHAGE [Concomitant]
     Dates: start: 20070101
  22. PAXIL [Concomitant]
     Indication: ANXIETY
     Dates: start: 20060101, end: 20080101
  23. ZYRTEC [Concomitant]
     Indication: MULTIPLE ALLERGIES
     Dates: start: 20060101, end: 20070101
  24. COMBIVENT [Concomitant]
     Dates: start: 20040101, end: 20080415
  25. YASMIN [Suspect]
     Indication: PREMENSTRUAL SYNDROME

REACTIONS (15)
  - ANXIETY [None]
  - SPEECH DISORDER [None]
  - AMNESIA [None]
  - DEPRESSION [None]
  - DEEP VEIN THROMBOSIS [None]
  - TRANSIENT ISCHAEMIC ATTACK [None]
  - COGNITIVE DISORDER [None]
  - ASTHENIA [None]
  - MENTAL STATUS CHANGES [None]
  - ATTENTION DEFICIT/HYPERACTIVITY DISORDER [None]
  - TRISMUS [None]
  - VISION BLURRED [None]
  - DEMENTIA [None]
  - DIZZINESS [None]
  - INCOHERENT [None]
